FAERS Safety Report 5422547-1 (Version None)
Quarter: 2007Q3

REPORT INFORMATION
  Report Type: 
  Country: None (occurrence: None)
  Receive Date: 20070822
  Receipt Date: 20070810
  Transmission Date: 20080115
  Serious: Yes (Death)
  Sender: FDA-Public Use
  Company Number: AU-SANOFI-SYNTHELABO-A01200701957

PATIENT
  Age: 37 Year
  Sex: Male

DRUGS (2)
  1. ALCOHOL [Concomitant]
     Indication: DRUG USE FOR UNKNOWN INDICATION
     Dosage: UNK
     Route: 048
     Dates: start: 20070217
  2. STILNOX [Suspect]
     Indication: INSOMNIA
     Dosage: 1 DF
     Route: 048
     Dates: start: 20070101, end: 20070216

REACTIONS (3)
  - FALL [None]
  - SOMNAMBULISM [None]
  - TRANCE [None]
